FAERS Safety Report 6148655-8 (Version None)
Quarter: 2009Q2

REPORT INFORMATION
  Report Type: 
  Country: None (occurrence: None)
  Receive Date: 20090408
  Receipt Date: 20090408
  Transmission Date: 20091009
  Serious: Yes (Hospitalization, Other)
  Sender: FDA-Public Use
  Company Number: US-PFIZER INC-2007097445

PATIENT
  Sex: Female
  Weight: 59.09 kg

DRUGS (2)
  1. CHANTIX [Suspect]
     Dates: start: 20070627, end: 20070628
  2. WELLBUTRIN [Concomitant]

REACTIONS (6)
  - ABASIA [None]
  - ABDOMINAL PAIN UPPER [None]
  - INTESTINAL STRANGULATION [None]
  - LUNG DISORDER [None]
  - NAUSEA [None]
  - VOMITING [None]
